FAERS Safety Report 6178079-9 (Version None)
Quarter: 2009Q2

REPORT INFORMATION
  Report Type: 
  Country: None (occurrence: None)
  Receive Date: 20090501
  Receipt Date: 20090501
  Transmission Date: 20091009
  Serious: Yes (Other)
  Sender: FDA-Public Use
  Company Number: None

PATIENT

DRUGS (2)
  1. YAZ [Suspect]
     Indication: ABDOMINAL DISCOMFORT
     Dates: start: 20090413, end: 20090414
  2. YAZ [Suspect]
     Indication: CONTRACEPTION
     Dates: start: 20090413, end: 20090414

REACTIONS (6)
  - ABDOMINAL DISCOMFORT [None]
  - BURNING SENSATION [None]
  - DIZZINESS [None]
  - GASTROINTESTINAL DISORDER [None]
  - HEART RATE INCREASED [None]
  - NAUSEA [None]
